FAERS Safety Report 4576015-X (Version None)
Quarter: 2005Q1

REPORT INFORMATION
  Report Type: 
  Country: None (occurrence: None)
  Receive Date: 20050209
  Receipt Date: 20050128
  Transmission Date: 20050727
  Serious: Yes (Hospitalization)
  Sender: FDA-Public Use
  Company Number: FR-ROCHE-394085

PATIENT
  Age: 60 Year
  Sex: Female

DRUGS (6)
  1. ROCEPHIN [Suspect]
     Dosage: FORMULATION: INJECTABLE SOLUTION.
     Route: 042
     Dates: start: 20041203, end: 20041206
  2. PREVISCAN [Interacting]
     Indication: DRUG USE FOR UNKNOWN INDICATION
     Route: 048
     Dates: start: 20040415, end: 20040415
  3. PREVISCAN [Interacting]
     Route: 048
     Dates: start: 20040415, end: 20041108
  4. PREVISCAN [Interacting]
     Route: 048
     Dates: end: 20041112
  5. PREVISCAN [Interacting]
     Route: 048
     Dates: start: 20041112, end: 20041206
  6. DEPAKENE [Concomitant]
     Indication: DRUG USE FOR UNKNOWN INDICATION
     Route: 048

REACTIONS (10)
  - ASPIRATION [None]
  - DRUG INTERACTION [None]
  - EPISTAXIS [None]
  - HAEMOGLOBIN DECREASED [None]
  - HYPERTHERMIA [None]
  - INTERNATIONAL NORMALISED RATIO INCREASED [None]
  - LUNG INFECTION [None]
  - PROTHROMBIN TIME SHORTENED [None]
  - PULMONARY EMBOLISM [None]
  - RESPIRATORY DISTRESS [None]
